FAERS Safety Report 5911041-7 (Version None)
Quarter: 2008Q4

REPORT INFORMATION
  Report Type: 
  Country: None (occurrence: None)
  Receive Date: 20081007
  Receipt Date: 20080925
  Transmission Date: 20090506
  Serious: Yes (Hospitalization)
  Sender: FDA-Public Use
  Company Number: AU-WYE-H05932708

PATIENT
  Sex: Male
  Weight: 101 kg

DRUGS (3)
  1. SOMAC [Suspect]
     Route: 048
     Dates: end: 20071209
  2. ALENDRONIC ACID [Concomitant]
     Route: 048
     Dates: end: 20071208
  3. NEORAL [Concomitant]
     Dosage: UNKNOWN
     Route: 048
     Dates: start: 20060906, end: 20070911

REACTIONS (3)
  - CHOLESTASIS [None]
  - CONCOMITANT DISEASE PROGRESSION [None]
  - HEPATITIS C [None]
